FAERS Safety Report 5335114-5 (Version None)
Quarter: 2007Q2

REPORT INFORMATION
  Report Type: 
  Country: None (occurrence: None)
  Receive Date: 20070525
  Receipt Date: 20070522
  Transmission Date: 20071010
  Serious: Yes (Life-Threatening, Hospitalization, Disabling, Other)
  Sender: FDA-Public Use
  Company Number: DE-ABBOTT-06P-062-0353785-00

PATIENT
  Sex: Female

DRUGS (3)
  1. HUMIRA [Suspect]
     Indication: RHEUMATOID ARTHRITIS
     Dates: end: 20061201
  2. METHOTREXATE SODIUM [Suspect]
     Indication: RHEUMATOID ARTHRITIS
     Dates: end: 20061201
  3. HYDROCORTISONE [Suspect]
     Indication: RHEUMATOID ARTHRITIS
     Route: 042

REACTIONS (8)
  - C-REACTIVE PROTEIN INCREASED [None]
  - CELLULITIS [None]
  - EMPYEMA [None]
  - LYMPHANGITIS [None]
  - NECROSIS [None]
  - SKIN NECROSIS [None]
  - THERMAL BURN [None]
  - WHITE BLOOD CELL COUNT INCREASED [None]
